FAERS Safety Report 16959273 (Version 4)
Quarter: 2021Q1

REPORT INFORMATION
  Report Type: Report from Study
  Country: None (occurrence: JP)
  Receive Date: 20191024
  Receipt Date: 20210120
  Transmission Date: 20210419
  Serious: Yes (Life-Threatening, Hospitalization)
  Sender: FDA-Public Use
  Company Number: JP-ABBVIE-18S-087-2596246-00

PATIENT
  Age: 75 Year
  Sex: Male
  Weight: 62 kg

DRUGS (3)
  1. DUODOPA [Suspect]
     Active Substance: CARBIDOPA\LEVODOPA
     Indication: PARKINSON^S DISEASE
     Dosage: MD: 4 ML CD: 3.8 ML/HR X 16 HRS
     Route: 050
     Dates: start: 20181029, end: 20190117
  2. DUODOPA [Suspect]
     Active Substance: CARBIDOPA\LEVODOPA
  3. ROPINIROLE HYDROCHLORIDE. [Concomitant]
     Active Substance: ROPINIROLE HYDROCHLORIDE
     Indication: PARKINSON^S DISEASE
     Route: 048
     Dates: start: 20190117

REACTIONS (4)
  - Therapeutic product effect decreased [Unknown]
  - Abdominal abscess [Recovered/Resolved]
  - Device difficult to use [Unknown]
  - Abdominal sepsis [Recovering/Resolving]

NARRATIVE: CASE EVENT DATE: 2018
